FAERS Safety Report 8578147-8 (Version None)
Quarter: 2012Q3

REPORT INFORMATION
  Report Type: 
  Country: None (occurrence: None)
  Receive Date: 20120808
  Receipt Date: 20120731
  Transmission Date: 20120928
  Serious: Yes (Hospitalization)
  Sender: FDA-Public Use
  Company Number: US-BAYER-2012-046224

PATIENT
  Age: 18 Year
  Sex: Female

DRUGS (4)
  1. NAPROXEN (ALEVE) [Concomitant]
  2. YASMIN [Suspect]
  3. YAZ [Suspect]
     Indication: MENSTRUAL DISORDER
     Dosage: UNK
  4. YAZ [Suspect]
     Indication: ACNE

REACTIONS (8)
  - PULMONARY EMBOLISM [None]
  - QUALITY OF LIFE DECREASED [None]
  - ANXIETY [None]
  - FEAR [None]
  - PAIN [None]
  - INJURY [None]
  - DEEP VEIN THROMBOSIS [None]
  - ANHEDONIA [None]
